FAERS Safety Report 8443193-1 (Version None)
Quarter: 2012Q2

REPORT INFORMATION
  Report Type: 
  Country: None (occurrence: None)
  Receive Date: 20120617
  Receipt Date: 20120612
  Transmission Date: 20120825
  Serious: Yes (Other)
  Sender: FDA-Public Use
  Company Number: US-AMGEN-USASP2012036565

PATIENT
  Age: 72 Year
  Sex: Male

DRUGS (1)
  1. ENBREL [Suspect]
     Indication: RHEUMATOID ARTHRITIS
     Dosage: 25 MG, QWK
     Dates: start: 20060501, end: 20070901

REACTIONS (13)
  - CONSTIPATION [None]
  - NIGHTMARE [None]
  - DEPRESSION [None]
  - ATRIOVENTRICULAR BLOCK [None]
  - INSOMNIA [None]
  - RHEUMATOID ARTHRITIS [None]
  - NASOPHARYNGITIS [None]
  - BEDRIDDEN [None]
  - GAIT DISTURBANCE [None]
  - DEHYDRATION [None]
  - PAIN [None]
  - SLOW RESPONSE TO STIMULI [None]
  - MYOCARDIAL INFARCTION [None]
